FAERS Safety Report 7873411-X (Version None)
Quarter: 2011Q4

REPORT INFORMATION
  Report Type: 
  Country: None (occurrence: None)
  Receive Date: 20111030
  Receipt Date: 20110504
  Transmission Date: 20120403
  Serious: No
  Sender: FDA-Public Use
  Company Number: US-AMGEN-USASP2011023146

PATIENT
  Sex: Female

DRUGS (3)
  1. REMICADE [Concomitant]
  2. ENBREL [Suspect]
     Indication: RHEUMATOID ARTHRITIS
  3. SIMPONI [Concomitant]

REACTIONS (2)
  - OEDEMA PERIPHERAL [None]
  - COUGH [None]
